FAERS Safety Report 18419070 (Version 1)
Quarter: 2020Q4

REPORT INFORMATION
  Report Type: Other
  Country: US (occurrence: US)
  Receive Date: 20201023
  Receipt Date: 20201023
  Transmission Date: 20210114
  Serious: Yes (Hospitalization)
  Sender: FDA-Public Use
  Company Number: US-ROCHE-2698072

PATIENT
  Age: 72 Year
  Sex: Male

DRUGS (14)
  1. RITUXIMAB. [Suspect]
     Active Substance: RITUXIMAB
     Indication: ACQUIRED AMEGAKARYOCYTIC THROMBOCYTOPENIA
     Route: 065
  2. LEVOFLOXACIN. [Concomitant]
     Active Substance: LEVOFLOXACIN
     Route: 048
  3. TOBRAMYCIN. [Concomitant]
     Active Substance: TOBRAMYCIN
  4. CYCLOSPORINE A [Concomitant]
     Active Substance: CYCLOSPORINE
  5. CEFEPIME [Concomitant]
     Active Substance: CEFEPIME HYDROCHLORIDE
  6. MEROPENEM. [Concomitant]
     Active Substance: MEROPENEM
  7. METHYLPREDNISOLONE. [Concomitant]
     Active Substance: METHYLPREDNISOLONE
     Route: 042
  8. CEFTRIAXONE. [Concomitant]
     Active Substance: CEFTRIAXONE
  9. POSACONAZOLE [Concomitant]
     Active Substance: POSACONAZOLE
  10. TOCILIZUMAB. [Suspect]
     Active Substance: TOCILIZUMAB
     Indication: COVID-19 PNEUMONIA
     Dosage: 5 MG/KG (400MG)
     Route: 065
  11. VORICONAZOLE. [Concomitant]
     Active Substance: VORICONAZOLE
  12. HYDROXYCHLOROQUINE [Concomitant]
     Active Substance: HYDROXYCHLOROQUINE
     Dosage: 400MG TWICE A DAY FOR 1 DAY, FOLLOWED BY 200MG TWICE A DAY FOR 4 DAYS
  13. AZITHROMYCIN ANHYDROUS. [Concomitant]
     Active Substance: AZITHROMYCIN ANHYDROUS
  14. VANCOMYCIN [Concomitant]
     Active Substance: VANCOMYCIN

REACTIONS (3)
  - Intentional product use issue [Unknown]
  - Off label use [Unknown]
  - COVID-19 pneumonia [Recovered/Resolved]
